FAERS Safety Report 15864607 (Version 2)
Quarter: 2019Q1

REPORT INFORMATION
  Report Type: Report from Study
  Country: MX (occurrence: MX)
  Receive Date: 20190124
  Receipt Date: 20190125
  Transmission Date: 20190417
  Serious: Yes (Other)
  Sender: FDA-Public Use
  Company Number: PHHY2019MX016068

PATIENT
  Age: 51 Year
  Sex: Female
  Weight: 75 kg

DRUGS (1)
  1. CO-DIOVAN [Suspect]
     Active Substance: HYDROCHLOROTHIAZIDE\VALSARTAN
     Indication: HYPERTENSION
     Dosage: 1 DF (100MG) (AS REPORTED), QD (8 YEARS AGO)
     Route: 048

REACTIONS (8)
  - Vomiting [Recovered/Resolved]
  - Nephrotic syndrome [Recovered/Resolved with Sequelae]
  - Feeling abnormal [Unknown]
  - Synovial cyst [Unknown]
  - Proteinuria [Unknown]
  - Pain [Recovering/Resolving]
  - Drug intolerance [Recovered/Resolved]
  - Breast cancer [Recovered/Resolved]

NARRATIVE: CASE EVENT DATE: 20170123
